FAERS Safety Report 21421063 (Version 1)
Quarter: 2022Q4

REPORT INFORMATION
  Report Type: Other
  Country: AU (occurrence: None)
  Receive Date: 20221007
  Receipt Date: 20221007
  Transmission Date: 20230113
  Serious: Yes (Other)
  Sender: FDA-Public Use
  Company Number: AU-ROCHE-3191228

PATIENT
  Sex: Male

DRUGS (3)
  1. OCREVUS [Suspect]
     Active Substance: OCRELIZUMAB
     Indication: Multiple sclerosis
     Route: 042
  2. PANTOPRAZOLE SODIUM [Concomitant]
     Active Substance: PANTOPRAZOLE SODIUM
     Route: 048
  3. LORATADINE [Concomitant]
     Active Substance: LORATADINE

REACTIONS (5)
  - Pharyngeal paraesthesia [Recovered/Resolved]
  - COVID-19 [Recovered/Resolved with Sequelae]
  - Optic neuritis [Recovered/Resolved with Sequelae]
  - Eye pruritus [Recovered/Resolved]
  - Throat irritation [Recovered/Resolved]

NARRATIVE: CASE EVENT DATE: 20220101
